FAERS Safety Report 10559525 (Version 2)
Quarter: 2014Q4

REPORT INFORMATION
  Report Type: Spontaneous
  Country: JP (occurrence: JP)
  Receive Date: 20141103
  Receipt Date: 20141114
  Transmission Date: 20150529
  Serious: Yes (Other)
  Sender: FDA-Public Use
  Company Number: PHHY2014JP142720

PATIENT
  Age: 76 Year
  Sex: Female

DRUGS (1)
  1. ZOLEDRONIC ACID [Suspect]
     Active Substance: ZOLEDRONIC ACID
     Indication: PLASMA CELL MYELOMA
     Route: 041

REACTIONS (4)
  - Purulent discharge [Recovering/Resolving]
  - Osteonecrosis of jaw [Recovering/Resolving]
  - Dental fistula [Recovering/Resolving]
  - Primary sequestrum [Recovering/Resolving]
